FAERS Safety Report 15560542 (Version 1)
Quarter: 2018Q4

REPORT INFORMATION
  Report Type: Spontaneous
  Country: US (occurrence: US)
  Receive Date: 20181029
  Receipt Date: 20181029
  Transmission Date: 20190205
  Serious: Yes (Other)
  Sender: FDA-Public Use
  Company Number: US-BAUSCH-BL-2018-029469

PATIENT
  Age: 76 Year
  Sex: Female

DRUGS (1)
  1. FLUOROURACIL. [Suspect]
     Active Substance: FLUOROURACIL
     Indication: ACTINIC KERATOSIS
     Dosage: APPLIED SEVEN TIMES A DAY INSTEAD OF TWICE A DAY FOR 2 WEEKS
     Route: 061

REACTIONS (6)
  - Skin reaction [Recovering/Resolving]
  - Blister [Recovering/Resolving]
  - Impetigo [Recovered/Resolved]
  - Erythema [Recovering/Resolving]
  - Inappropriate schedule of product administration [Recovered/Resolved]
  - Skin exfoliation [Recovering/Resolving]
